FAERS Safety Report 21734753 (Version 1)
Quarter: 2022Q4

REPORT INFORMATION
  Report Type: Spontaneous
  Country: PL (occurrence: None)
  Receive Date: 20221215
  Receipt Date: 20221215
  Transmission Date: 20230113
  Serious: Yes (Hospitalization, Other)
  Sender: FDA-Public Use
  Company Number: PL-ROCHE-3241726

PATIENT
  Age: 64 Year
  Sex: Female

DRUGS (1)
  1. ATEZOLIZUMAB [Suspect]
     Active Substance: ATEZOLIZUMAB
     Indication: Lung adenocarcinoma
     Route: 041
     Dates: start: 20191127

REACTIONS (7)
  - Hyperthyroidism [Unknown]
  - Laryngocele [Unknown]
  - Tumour invasion [Recovered/Resolved]
  - Affective disorder [Unknown]
  - Arthralgia [Unknown]
  - Productive cough [Unknown]
  - Dysphonia [Recovering/Resolving]

NARRATIVE: CASE EVENT DATE: 20200201
